FAERS Safety Report 9114426 (Version 1)
Quarter: 2013Q1

REPORT INFORMATION
  Report Type: Spontaneous
  Country: US (occurrence: None)
  Receive Date: 20130220
  Receipt Date: 20130220
  Transmission Date: 20140127
  Serious: Yes (Hospitalization)
  Sender: FDA-Public Use
  Company Number: None

PATIENT
  Age: 82 Year
  Sex: Male
  Weight: 63.5 kg

DRUGS (2)
  1. SYMLINPEN [Suspect]
     Indication: DIABETES MELLITUS
     Dosage: QD, TID, TID?1-1-2012
     Dates: start: 20120101
  2. AMYLIN [Suspect]

REACTIONS (2)
  - Blood glucose increased [None]
  - Product quality issue [None]
